FAERS Safety Report 7237637-0 (Version None)
Quarter: 2011Q1

REPORT INFORMATION
  Report Type: 
  Country: None (occurrence: None)
  Receive Date: 20110121
  Receipt Date: 20110111
  Transmission Date: 20110831
  Serious: Yes (Hospitalization, Other)
  Sender: FDA-Public Use
  Company Number: PHHY2010JP43578

PATIENT
  Sex: Male

DRUGS (17)
  1. DECADRON [Concomitant]
     Indication: METASTATIC RENAL CELL CARCINOMA
     Dosage: 1 MG, UNK
     Route: 048
     Dates: start: 20100529, end: 20100625
  2. SELBEX [Concomitant]
     Dosage: 180 MG, UNK
     Route: 048
     Dates: start: 20100529, end: 20100629
  3. KETOPROFEN [Concomitant]
     Indication: METASTATIC RENAL CELL CARCINOMA
     Dosage: 40 MG, UNK
     Route: 048
     Dates: start: 20100529, end: 20100629
  4. SUMIFERON [Concomitant]
     Indication: METASTATIC RENAL CELL CARCINOMA
     Dosage: UNK
     Route: 042
     Dates: start: 20061001
  5. SUMIFERON [Concomitant]
     Dosage: UNK
     Route: 042
  6. URSO 250 [Concomitant]
     Dosage: 300 MG, UNK
     Route: 048
     Dates: start: 20100529, end: 20100629
  7. TATHION [Concomitant]
     Dosage: 300 MG, UNK
     Route: 048
     Dates: start: 20100529, end: 20100629
  8. PURSENNID [Concomitant]
     Dosage: UNK
     Route: 048
     Dates: start: 20100611, end: 20100629
  9. TAKEPRON [Concomitant]
     Dosage: 15 MG, UNK
     Route: 048
     Dates: start: 20100529, end: 20100629
  10. BAKTAR [Concomitant]
     Indication: PROPHYLAXIS
     Dosage: 1 DF, UNK
     Route: 048
     Dates: start: 20090627, end: 20100629
  11. SUMIFERON [Concomitant]
     Dosage: UNK
     Route: 042
  12. AFINITOR [Suspect]
     Indication: METASTATIC RENAL CELL CARCINOMA
     Dosage: 10 MG DAILY
     Route: 048
     Dates: start: 20100524, end: 20100625
  13. INTERFERON ALFA [Concomitant]
     Indication: METASTATIC RENAL CELL CARCINOMA
     Dosage: UNK
     Route: 042
     Dates: start: 20061001
  14. SORAFENIB TOSILATE [Concomitant]
     Dosage: 400 MG, UNK
     Route: 048
     Dates: start: 20090409, end: 20100525
  15. SORAFENIB TOSILATE [Concomitant]
     Indication: METASTATIC RENAL CELL CARCINOMA
     Dosage: 400 MG, UNK
     Route: 048
     Dates: start: 20100409, end: 20100525
  16. CALONAL [Concomitant]
     Indication: METASTATIC RENAL CELL CARCINOMA
     Dosage: UNK
     Route: 048
     Dates: start: 20100611, end: 20100629
  17. AFINITOR [Suspect]
     Dosage: 10 MG DAILY
     Route: 048
     Dates: start: 20100809, end: 20100809

REACTIONS (7)
  - BLOOD CREATININE INCREASED [None]
  - INTERSTITIAL LUNG DISEASE [None]
  - MALAISE [None]
  - COUGH [None]
  - RENAL IMPAIRMENT [None]
  - PNEUMONITIS [None]
  - NEOPLASM MALIGNANT [None]
